FAERS Safety Report 16170235 (Version 2)
Quarter: 2019Q2

REPORT INFORMATION
  Report Type: Spontaneous
  Country: US (occurrence: US)
  Receive Date: 20190408
  Receipt Date: 20190415
  Transmission Date: 20190711
  Serious: Yes (Hospitalization, Other)
  Sender: FDA-Public Use
  Company Number: US-JNJFOC-20160822375

PATIENT

DRUGS (4)
  1. HALOPERIDOL DECANOATE. [Suspect]
     Active Substance: HALOPERIDOL DECANOATE
     Indication: SCHIZOPHRENIA
     Dosage: 25-200MG FOR UPTO 2 YEARS
     Route: 065
  2. HALOPERIDOL DECANOATE. [Suspect]
     Active Substance: HALOPERIDOL DECANOATE
     Indication: SCHIZOAFFECTIVE DISORDER
     Dosage: 25-200MG FOR UPTO 2 YEARS
     Route: 065
  3. PALIPERIDONE PALMITATE [Suspect]
     Active Substance: PALIPERIDONE PALMITATE
     Indication: SCHIZOAFFECTIVE DISORDER
     Dosage: 39-234MG FOR UPTO 2 YEARS
     Route: 065
  4. PALIPERIDONE PALMITATE [Suspect]
     Active Substance: PALIPERIDONE PALMITATE
     Indication: SCHIZOPHRENIA
     Dosage: 39-234MG FOR UPTO 2 YEARS
     Route: 065

REACTIONS (10)
  - Hospitalisation [Unknown]
  - Extrapyramidal disorder [Unknown]
  - Blood glucose abnormal [Unknown]
  - Lipids abnormal [Unknown]
  - Condition aggravated [Unknown]
  - Akathisia [Unknown]
  - Treatment failure [Unknown]
  - Therapeutic response decreased [Unknown]
  - Weight increased [Unknown]
  - Blood prolactin increased [Unknown]
